FAERS Safety Report 21737549 (Version 1)
Quarter: 2022Q4

REPORT INFORMATION
  Report Type: Report from Study
  Country: US (occurrence: US)
  Receive Date: 20221216
  Receipt Date: 20221216
  Transmission Date: 20230113
  Serious: No
  Sender: FDA-Public Use
  Company Number: US-ABBVIE-4187758

PATIENT
  Age: 68 Year
  Sex: Male

DRUGS (1)
  1. RINVOQ [Suspect]
     Active Substance: UPADACITINIB
     Indication: Eczema
     Dosage: RINVOQ ER, FORM STRENGTH: 15 MG
     Route: 048
     Dates: start: 20221027, end: 20221030

REACTIONS (3)
  - Malaise [Unknown]
  - Influenza [Unknown]
  - Chest pain [Unknown]

NARRATIVE: CASE EVENT DATE: 20221001
